FAERS Safety Report 19220045 (Version 6)
Quarter: 2024Q2

REPORT INFORMATION
  Report Type: Report from Study
  Country: US (occurrence: US)
  Receive Date: 20210505
  Receipt Date: 20240621
  Transmission Date: 20240715
  Serious: Yes (Other)
  Sender: FDA-Public Use
  Company Number: US-GW PHARMA-202104USGW02158

PATIENT

DRUGS (6)
  1. EPIDIOLEX [Suspect]
     Active Substance: CANNABIDIOL
     Indication: Product used for unknown indication
     Dosage: 250 MG (SHOULD BE TAKING 350 MG AS ADVISED BY PHYSICIAN, BUT ONLY HAD A SCRIPT FOR 250 MG)
     Route: 048
     Dates: start: 20200122
  2. EPIDIOLEX [Suspect]
     Active Substance: CANNABIDIOL
     Dosage: BID
  3. EPIDIOLEX [Suspect]
     Active Substance: CANNABIDIOL
     Dosage: 3 MILLIGRAM, BID
     Route: 048
  4. EPIDIOLEX [Suspect]
     Active Substance: CANNABIDIOL
     Dosage: 3.5 MILLIGRAM, BID (PT STATED DOSING 3.5ML IN PM INSTEAD OF THE 4ML)
     Route: 048
  5. EPIDIOLEX [Suspect]
     Active Substance: CANNABIDIOL
     Dosage: 30 MILLILITRE IN THE AM AND 35 MILLILITRE AT NIGHT
     Route: 048
  6. EPIDIOLEX [Suspect]
     Active Substance: CANNABIDIOL
     Dosage: 30 MILLILITRE IN THE AM AND 35 MILLILITRE AT NIGHT
     Route: 048
     Dates: start: 20190101

REACTIONS (14)
  - Seizure [Recovered/Resolved with Sequelae]
  - Brain operation [Not Recovered/Not Resolved]
  - Memory impairment [Not Recovered/Not Resolved]
  - Nervousness [Unknown]
  - Fear [Unknown]
  - Disorientation [Unknown]
  - Feeling abnormal [Unknown]
  - Amnesia [Unknown]
  - Fatigue [Not Recovered/Not Resolved]
  - Visual impairment [Not Recovered/Not Resolved]
  - Product administration interrupted [Unknown]
  - Product prescribing error [Unknown]
  - Circumstance or information capable of leading to medication error [Unknown]
  - Incorrect dose administered [Unknown]

NARRATIVE: CASE EVENT DATE: 20210401
